FAERS Safety Report 21234837 (Version 2)
Quarter: 2022Q3

REPORT INFORMATION
  Report Type: Report from Study
  Country: NL (occurrence: NL)
  Receive Date: 20220820
  Receipt Date: 20220912
  Transmission Date: 20221027
  Serious: Yes (Hospitalization, Other)
  Sender: FDA-Public Use
  Company Number: NL-AMGEN-NLDNI2022141269

PATIENT
  Age: 45 Year
  Sex: Male

DRUGS (4)
  1. SOTORASIB [Suspect]
     Active Substance: SOTORASIB
     Indication: Non-small cell lung cancer metastatic
     Dosage: 960 UNK, QD
     Route: 048
     Dates: start: 20220713
  2. APIXABAN [Concomitant]
     Active Substance: APIXABAN
     Indication: Product used for unknown indication
     Dosage: 5 DOSAGE FORM, BID
     Route: 048
     Dates: start: 202206, end: 20220813
  3. OXYCODONE [Concomitant]
     Active Substance: OXYCODONE
     Dosage: 10 DOSAGE FORM, BID
     Route: 048
     Dates: start: 202206
  4. FERRO FUMARAT [Concomitant]
     Dosage: 200 DOSAGE FORM, QD
     Route: 048
     Dates: start: 202204

REACTIONS (1)
  - Cerebrovascular accident [Not Recovered/Not Resolved]

NARRATIVE: CASE EVENT DATE: 20220812
